FAERS Safety Report 6335589-9 (Version None)
Quarter: 2009Q3

REPORT INFORMATION
  Report Type: 
  Country: None (occurrence: None)
  Receive Date: 20090831
  Receipt Date: 20090820
  Transmission Date: 20100115
  Serious: Yes (Hospitalization)
  Sender: FDA-Public Use
  Company Number: FR-PFIZER INC-2009257253

PATIENT
  Sex: Male

DRUGS (8)
  1. TAHOR [Suspect]
     Indication: MYOCARDIAL INFARCTION
     Dosage: UNK
     Dates: start: 20080701
  2. PERINDOPRIL [Suspect]
     Indication: HYPERTENSION
     Dosage: 1 DF, 1X/DAY
     Route: 048
     Dates: start: 20081201, end: 20090213
  3. CARDENSIEL [Suspect]
     Indication: MYOCARDIAL INFARCTION
     Dosage: UNK
     Dates: start: 20080701
  4. KARDEGIC [Suspect]
     Indication: MYOCARDIAL INFARCTION
     Dosage: UNK
     Dates: start: 20080701
  5. MOPRAL [Suspect]
     Indication: MYOCARDIAL INFARCTION
     Dosage: UNK
     Dates: start: 20080701
  6. CORTANCYL [Suspect]
     Indication: MYOCARDIAL INFARCTION
     Dosage: UNK
     Dates: start: 20080701
  7. POLARAMINE [Concomitant]
  8. AERIUS [Concomitant]

REACTIONS (2)
  - FACE OEDEMA [None]
  - RASH [None]
